FAERS Safety Report 13850822 (Version 11)
Quarter: 2019Q2

REPORT INFORMATION
  Report Type: Report from Study
  Country: BR (occurrence: BR)
  Receive Date: 20170809
  Receipt Date: 20190415
  Transmission Date: 20190711
  Serious: Yes (Hospitalization, Other)
  Sender: FDA-Public Use
  Company Number: BR-GLAXOSMITHKLINE-BR2016GSK044952

PATIENT
  Age: 35 Year
  Sex: Female
  Weight: 54 kg

DRUGS (6)
  1. BELIMUMAB [Suspect]
     Active Substance: BELIMUMAB
     Dosage: 540 MG, UNK
  2. BELIMUMAB [Suspect]
     Active Substance: BELIMUMAB
     Indication: SYSTEMIC LUPUS ERYTHEMATOSUS
     Dosage: 560 MG, UNK
     Dates: start: 20160316
  3. CHLOROQUINE. [Concomitant]
     Active Substance: CHLOROQUINE
     Indication: PRODUCT USED FOR UNKNOWN INDICATION
     Dosage: 50 MG, UNK
  4. MAREVAN [Suspect]
     Active Substance: WARFARIN SODIUM
     Indication: CEREBROVASCULAR ACCIDENT
     Dosage: 2.5 MG, QD
  5. METHOTREXATE. [Concomitant]
     Active Substance: METHOTREXATE
     Indication: PAIN
     Dosage: UNK
  6. FLUCONAZOLE. [Suspect]
     Active Substance: FLUCONAZOLE
     Indication: ONYCHOMYCOSIS
     Dosage: UNK

REACTIONS (27)
  - Decreased appetite [Unknown]
  - Back pain [Unknown]
  - Dyspnoea [Unknown]
  - Pruritus generalised [Recovered/Resolved]
  - Onychomycosis [Unknown]
  - Vaginal haemorrhage [Recovered/Resolved]
  - Alopecia [Unknown]
  - Product prescribing issue [Not Recovered/Not Resolved]
  - Underdose [Not Recovered/Not Resolved]
  - Cerebrovascular accident [Unknown]
  - Hypersensitivity [Recovered/Resolved]
  - Menorrhagia [Recovered/Resolved]
  - Myalgia [Unknown]
  - Arthralgia [Unknown]
  - Product dose omission [Not Recovered/Not Resolved]
  - Inappropriate schedule of product administration [Recovered/Resolved]
  - Speech disorder [Unknown]
  - Urticaria [Unknown]
  - Product availability issue [Unknown]
  - Somnolence [Unknown]
  - Systemic lupus erythematosus rash [Unknown]
  - Pain [Unknown]
  - Foot operation [Recovered/Resolved]
  - Weight increased [Unknown]
  - Gait disturbance [Unknown]
  - Weight decreased [Unknown]
  - Circumstance or information capable of leading to medication error [Unknown]

NARRATIVE: CASE EVENT DATE: 20170512
